FAERS Safety Report 9900776 (Version 1)
Quarter: 2014Q1

REPORT INFORMATION
  Report Type: Report from Study
  Country: US (occurrence: US)
  Receive Date: 20140217
  Receipt Date: 20140217
  Transmission Date: 20141002
  Serious: Yes (Hospitalization, Disabling, Other)
  Sender: FDA-Public Use
  Company Number: US-ROCHE-1330267

PATIENT
  Sex: Female
  Weight: 71.28 kg

DRUGS (2)
  1. AVASTIN [Suspect]
     Indication: BREAST CANCER
     Route: 065
     Dates: start: 200901
  2. ABRAXANE [Suspect]
     Indication: BREAST CANCER METASTATIC
     Route: 065
     Dates: start: 200901, end: 200907

REACTIONS (13)
  - Device related infection [Unknown]
  - Staphylococcal sepsis [Unknown]
  - Weight decreased [Unknown]
  - Renal failure [Unknown]
  - Decreased appetite [Unknown]
  - Chest pain [Unknown]
  - Breast pain [Unknown]
  - Asthenia [Unknown]
  - Epistaxis [Unknown]
  - Transient ischaemic attack [Unknown]
  - Disease recurrence [Unknown]
  - Axillary pain [Unknown]
  - Musculoskeletal chest pain [Unknown]
